FAERS Safety Report 7376905-9 (Version None)
Quarter: 2011Q1

REPORT INFORMATION
  Report Type: 
  Country: None (occurrence: None)
  Receive Date: 20110327
  Receipt Date: 20110317
  Transmission Date: 20110831
  Serious: Yes (Hospitalization)
  Sender: FDA-Public Use
  Company Number: JP-BRISTOL-MYERS SQUIBB COMPANY-15618747

PATIENT
  Age: 71 Year
  Sex: Male
  Weight: 92 kg

DRUGS (10)
  1. BLINDED: PLACEBO [Suspect]
     Indication: SCHIZOPHRENIA
     Dosage: 9FEB11 3RD TREATMENT
     Dates: start: 20110209, end: 20110309
  2. DEPAS [Concomitant]
  3. ARIPIPRAZOLE [Suspect]
     Indication: SCHIZOPHRENIA
     Dosage: 9FEB11 3RD TREATMENT
     Dates: start: 20110209, end: 20110309
  4. TASMOLIN [Concomitant]
  5. MAGLAX [Concomitant]
  6. GASMOTIN [Concomitant]
  7. MICARDIS [Concomitant]
  8. SENNOSIDE [Concomitant]
  9. AMLODIPINE [Concomitant]
     Dosage: AMLODIN OD
  10. ABILIFY [Suspect]
     Indication: SCHIZOPHRENIA
     Dosage: 1DEC10 1ST TREATMENT 12JAN11 2ND TREATMENT
     Route: 048
     Dates: start: 20101202, end: 20110208

REACTIONS (3)
  - PERSECUTORY DELUSION [None]
  - IRRITABILITY [None]
  - HALLUCINATION, AUDITORY [None]
